FAERS Safety Report 8880426 (Version 1)
Quarter: 2012Q4

REPORT INFORMATION
  Report Type: 
  Country: US (occurrence: US)
  Receive Date: 20121101
  Receipt Date: 20121101
  Transmission Date: 20130627
  Serious: Yes (Hospitalization)
  Sender: FDA-Public Use
  Company Number: PHEH2012US021317

PATIENT
  Age: 64 Year
  Sex: Female

DRUGS (1)
  1. GLEEVEC [Suspect]
     Indication: LEUKAEMIA
     Dosage: 400 mg, QD
     Route: 048
     Dates: start: 20061013, end: 20121029

REACTIONS (1)
  - Encephalitis [Recovered/Resolved]
